APPROVED DRUG PRODUCT: TEZRULY
Active Ingredient: TERAZOSIN HYDROCHLORIDE
Strength: EQ 1MG BASE/ML
Dosage Form/Route: SOLUTION;ORAL
Application: N218139 | Product #001
Applicant: NOVITIUM PHARMA LLC
Approved: Jul 29, 2024 | RLD: Yes | RS: No | Type: DISCN

PATENTS:
Patent 12427108 | Expires: Feb 1, 2041
Patent 12427108 | Expires: Feb 1, 2041
Patent 11224572 | Expires: Feb 1, 2041
Patent 11224572 | Expires: Feb 1, 2041